FAERS Safety Report 23778536 (Version 1)
Quarter: 2024Q2

REPORT INFORMATION
  Report Type: Other
  Country: IT (occurrence: None)
  Receive Date: 20240424
  Receipt Date: 20240424
  Transmission Date: 20240716
  Serious: Yes (Other)
  Sender: FDA-Public Use
  Company Number: IT-ROCHE-3538881

PATIENT
  Sex: Male

DRUGS (19)
  1. OBINUTUZUMAB [Suspect]
     Active Substance: OBINUTUZUMAB
     Indication: Product used for unknown indication
     Dosage: ADMINISTERED ON 27/02
     Route: 042
  2. OBINUTUZUMAB [Suspect]
     Active Substance: OBINUTUZUMAB
     Dosage: ADMINISTERED ON 28/02
     Route: 042
  3. GLOFITAMAB [Suspect]
     Active Substance: GLOFITAMAB
     Indication: Product used for unknown indication
     Dosage: ADMINISTERED ON 06/03
     Route: 042
  4. GLOFITAMAB [Suspect]
     Active Substance: GLOFITAMAB
     Dosage: ADMINISTERED ON 10/03
     Route: 042
  5. GLOFITAMAB [Suspect]
     Active Substance: GLOFITAMAB
     Dosage: ADMINISTERED ON 20/03 AND 10/04
     Route: 042
  6. ACYCLOVIR [Concomitant]
     Active Substance: ACYCLOVIR
  7. ASPIRIN [Concomitant]
     Active Substance: ASPIRIN
  8. BACTRIM [Concomitant]
     Active Substance: SULFAMETHOXAZOLE\TRIMETHOPRIM
  9. LASIX [Concomitant]
     Active Substance: FUROSEMIDE
  10. LANSOPRAZOLE [Concomitant]
     Active Substance: LANSOPRAZOLE
  11. ATORVASTATIN [Concomitant]
     Active Substance: ATORVASTATIN
  12. VALSARTAN [Concomitant]
     Active Substance: VALSARTAN
  13. LERCANIDIPINE [Concomitant]
     Active Substance: LERCANIDIPINE
  14. PATROL [Concomitant]
     Active Substance: ACETAMINOPHEN\TRAMADOL HYDROCHLORIDE
  15. ACETAMINOPHEN [Concomitant]
     Active Substance: ACETAMINOPHEN
  16. LEVOFLOXACIN [Concomitant]
     Active Substance: LEVOFLOXACIN
  17. TRIMETON [Concomitant]
     Active Substance: CHLORPHENIRAMINE MALEATE
  18. METHYLPREDNISOLONE [Concomitant]
     Active Substance: METHYLPREDNISOLONE
  19. FASTURTEC [Concomitant]
     Active Substance: RASBURICASE

REACTIONS (1)
  - Cytokine release syndrome [Unknown]
